FAERS Safety Report 6922647-0 (Version None)
Quarter: 2010Q3

REPORT INFORMATION
  Report Type: 
  Country: None (occurrence: None)
  Receive Date: 20100813
  Receipt Date: 20100802
  Transmission Date: 20110219
  Serious: Yes (Other)
  Sender: FDA-Public Use
  Company Number: PHHY2010CA25828

PATIENT
  Sex: Female

DRUGS (5)
  1. DIOVAN HCT [Suspect]
     Indication: HYPERTENSION
     Dosage: 1 DF, UNK
     Route: 048
     Dates: start: 20090505
  2. LIPITOR [Concomitant]
  3. ASAPHEN [Concomitant]
     Dosage: 81 MG, UNK
  4. ADALAT [Concomitant]
     Dosage: 60 MG, UNK
  5. ADALAT [Concomitant]
     Dosage: 20 MG, UNK

REACTIONS (5)
  - BLOOD PRESSURE INADEQUATELY CONTROLLED [None]
  - DIZZINESS [None]
  - HYPOTENSION [None]
  - VERTIGO [None]
  - WEIGHT DECREASED [None]
